FAERS Safety Report 23271612 (Version 1)
Quarter: 2023Q4

REPORT INFORMATION
  Report Type: Report from Study
  Country: US (occurrence: None)
  Receive Date: 20231207
  Receipt Date: 20231207
  Transmission Date: 20240110
  Serious: Yes (Other)
  Sender: FDA-Public Use
  Company Number: 2023A272602

PATIENT
  Sex: Male

DRUGS (1)
  1. LYNPARZA [Suspect]
     Active Substance: OLAPARIB
     Indication: Meningioma malignant
     Route: 048
     Dates: start: 20230801

REACTIONS (4)
  - Full blood count decreased [Unknown]
  - Urinary tract infection [Unknown]
  - Haematuria [Unknown]
  - Off label use [Unknown]
